FAERS Safety Report 6048439-5 (Version None)
Quarter: 2009Q1

REPORT INFORMATION
  Report Type: 
  Country: None (occurrence: None)
  Receive Date: 20090123
  Receipt Date: 20090116
  Transmission Date: 20090719
  Serious: Yes (Other)
  Sender: FDA-Public Use
  Company Number: A0764629A

PATIENT
  Age: 43 Year
  Sex: Female
  Weight: 125 kg

DRUGS (5)
  1. WELLBUTRIN [Suspect]
     Indication: DRUG USE FOR UNKNOWN INDICATION
     Route: 065
  2. LYRICA [Suspect]
     Indication: FIBROMYALGIA
     Dosage: 75MG THREE TIMES PER DAY
     Dates: start: 20081001
  3. VERAPAMIL [Concomitant]
  4. PROTONIX [Concomitant]
  5. HYDROCODONE BITARTRATE [Concomitant]

REACTIONS (22)
  - BREAST PAIN [None]
  - BREAST SWELLING [None]
  - BREAST TENDERNESS [None]
  - DYSPNOEA [None]
  - EAR DISCOMFORT [None]
  - EYE DISCHARGE [None]
  - EYE SWELLING [None]
  - HYPERAESTHESIA [None]
  - HYPERSENSITIVITY [None]
  - LYMPHADENOPATHY [None]
  - MUCOSAL INFLAMMATION [None]
  - MUCOUS MEMBRANE DISORDER [None]
  - NASAL CONGESTION [None]
  - NASAL DISCOMFORT [None]
  - OROPHARYNGEAL DISCOMFORT [None]
  - PARAESTHESIA [None]
  - PARAESTHESIA ORAL [None]
  - PHARYNGEAL OEDEMA [None]
  - PRODUCTIVE COUGH [None]
  - RASH [None]
  - SENSATION OF PRESSURE [None]
  - SWELLING FACE [None]
